FAERS Safety Report 7158876-3 (Version None)
Quarter: 2010Q4

REPORT INFORMATION
  Report Type: 
  Country: None (occurrence: None)
  Receive Date: 20101214
  Receipt Date: 20101202
  Transmission Date: 20110411
  Serious: Yes (Other)
  Sender: FDA-Public Use
  Company Number: PHEH2006US10885

PATIENT
  Sex: Female
  Weight: 51.247 kg

DRUGS (35)
  1. AREDIA [Suspect]
     Dosage: UNK
     Dates: end: 20030101
  2. ZOMETA [Suspect]
  3. CALCIUM [Concomitant]
  4. IRON [Concomitant]
  5. ZITHROMAX [Concomitant]
  6. PREDNISONE [Concomitant]
  7. PREMARIN [Concomitant]
  8. CELEXA [Concomitant]
  9. MEDROXYPROGESTERONE [Concomitant]
  10. CLINDAMYCIN HYDROCHLORIDE [Concomitant]
  11. PENLAC [Concomitant]
  12. IMITREX ^GLAXO^ [Concomitant]
  13. LEVAQUIN [Concomitant]
  14. FEOGEN FA [Concomitant]
  15. CHLORHEXIDINE GLUCONATE [Concomitant]
  16. DIFLUNISAL [Concomitant]
  17. CLOBETASOL [Concomitant]
  18. DETROL                                  /USA/ [Concomitant]
  19. ACTIVELLA [Concomitant]
  20. AMOXICILLIN [Concomitant]
  21. CITALOPRAM HYDROBROMIDE [Concomitant]
  22. EFFEXOR XR [Concomitant]
  23. CLARITHROMYCIN [Concomitant]
  24. AZITHROMYCIN [Concomitant]
  25. AVELOX [Concomitant]
  26. NASONEX [Concomitant]
  27. VENLAFAXINE HYDROCHLORIDE [Concomitant]
  28. ESTRADIOL + NORETHISTERONE ACETATE [Concomitant]
  29. POLYETHYLENE GLYCOL [Concomitant]
  30. PROZAC [Concomitant]
  31. MACROBID [Concomitant]
  32. ACETAMINOPHEN W/ CODEINE [Concomitant]
  33. PERIOGARD [Concomitant]
  34. OXYCODONE HCL AND ACETAMINOPHEN [Concomitant]
  35. ALLEGRA [Concomitant]

REACTIONS (49)
  - ANXIETY [None]
  - BONE DEBRIDEMENT [None]
  - BONE DISORDER [None]
  - COLONIC POLYP [None]
  - DECREASED INTEREST [None]
  - DENTAL IMPLANTATION [None]
  - DYSGEUSIA [None]
  - ENDODONTIC PROCEDURE [None]
  - ENDOMETRIAL HYPERPLASIA [None]
  - FACE LIFT [None]
  - FALL [None]
  - FEMUR FRACTURE [None]
  - FOOT DEFORMITY [None]
  - GENERAL PHYSICAL HEALTH DETERIORATION [None]
  - HAEMATOMA [None]
  - HAEMATURIA [None]
  - HYPERBARIC OXYGEN THERAPY [None]
  - HYPERKERATOSIS [None]
  - HYPERTONIC BLADDER [None]
  - IMPAIRED HEALING [None]
  - INFECTION [None]
  - INTERNAL FIXATION OF FRACTURE [None]
  - LIP SWELLING [None]
  - LOOSE TOOTH [None]
  - MEDICAL DEVICE REMOVAL [None]
  - MOUTH HAEMORRHAGE [None]
  - ONYCHOMYCOSIS [None]
  - ORAL CAVITY FISTULA [None]
  - OSTEOMYELITIS [None]
  - OSTEONECROSIS OF JAW [None]
  - OSTEOPOROSIS [None]
  - OSTEORADIONECROSIS [None]
  - PAIN [None]
  - PAROSMIA [None]
  - PHOTOPSIA [None]
  - POLYPECTOMY [None]
  - POSTERIOR CAPSULE OPACIFICATION [None]
  - RHINITIS ALLERGIC [None]
  - SECONDARY SEQUESTRUM [None]
  - SENSITIVITY OF TEETH [None]
  - SINUSITIS [None]
  - SKIN PAPILLOMA [None]
  - TOE OPERATION [None]
  - TOOTH DISORDER [None]
  - TOOTH EXTRACTION [None]
  - UPPER AIRWAY OBSTRUCTION [None]
  - VISUAL ACUITY REDUCED [None]
  - VISUAL IMPAIRMENT [None]
  - VITREOUS FLOATERS [None]
